FAERS Safety Report 5852428-0 (Version None)
Quarter: 2008Q3

REPORT INFORMATION
  Report Type: 
  Country: None (occurrence: None)
  Receive Date: 20080821
  Receipt Date: 20080818
  Transmission Date: 20090109
  Serious: Yes (Other)
  Sender: FDA-Public Use
  Company Number: US-BAYER-200825881NA

PATIENT
  Age: 35 Year
  Sex: Female
  Weight: 54 kg

DRUGS (4)
  1. MIRENA [Suspect]
     Indication: CONTRACEPTION
     Route: 015
     Dates: start: 20080205, end: 20080613
  2. ZOLOFT [Concomitant]
     Indication: DRUG USE FOR UNKNOWN INDICATION
  3. FLOVENT [Concomitant]
     Indication: DRUG USE FOR UNKNOWN INDICATION
  4. CALCIUM [Concomitant]
     Indication: DRUG USE FOR UNKNOWN INDICATION

REACTIONS (8)
  - ABDOMINAL DISTENSION [None]
  - ACNE [None]
  - BREAST ENLARGEMENT [None]
  - BREAST PAIN [None]
  - BREAST TENDERNESS [None]
  - HAEMORRHAGIC OVARIAN CYST [None]
  - MENORRHAGIA [None]
  - PAIN [None]
